FAERS Safety Report 7970787-X (Version None)
Quarter: 2011Q4

REPORT INFORMATION
  Report Type: 
  Country: None (occurrence: None)
  Receive Date: 20111212
  Receipt Date: 20111206
  Transmission Date: 20120403
  Serious: Yes (Death)
  Sender: FDA-Public Use
  Company Number: PHEH2011US07143

PATIENT
  Sex: Male

DRUGS (2)
  1. CHEMOTHERAPEUTICS,OTHER [Concomitant]
     Indication: GASTROINTESTINAL STROMAL TUMOUR
  2. GLEEVEC [Suspect]
     Indication: GASTROINTESTINAL STROMAL TUMOUR

REACTIONS (3)
  - NEOPLASM PROGRESSION [None]
  - DRUG INEFFECTIVE [None]
  - NEOPLASM MALIGNANT [None]
